FAERS Safety Report 20694368 (Version 3)
Quarter: 2022Q2

REPORT INFORMATION
  Report Type: Spontaneous
  Country: CZ (occurrence: CZ)
  Receive Date: 20220411
  Receipt Date: 20220509
  Transmission Date: 20220720
  Serious: Yes (Life-Threatening, Hospitalization, Other)
  Sender: FDA-Public Use
  Company Number: CZ-GLAXOSMITHKLINE-CZ2022EME053175

PATIENT
  Age: 31 Year
  Sex: Female

DRUGS (9)
  1. LAMOTRIGINE [Suspect]
     Active Substance: LAMOTRIGINE
     Indication: Product used for unknown indication
     Dosage: UNK
     Route: 065
     Dates: start: 2021
  2. LAMOTRIGINE [Suspect]
     Active Substance: LAMOTRIGINE
     Indication: Suicide attempt
  3. FLUOXETINE [Interacting]
     Active Substance: FLUOXETINE HYDROCHLORIDE
     Indication: Anxiety
     Dosage: 20 MILLIGRAM, ONCE A DAY (20 MG, 1D)
     Route: 065
     Dates: start: 20210410
  4. WARFARIN [Interacting]
     Active Substance: WARFARIN
     Indication: Pulmonary embolism
     Dosage: 10 MILLIGRAM, ONCE A DAY (10 MG, 1D)
     Route: 065
     Dates: start: 20210410
  5. WARFARIN [Interacting]
     Active Substance: WARFARIN
     Dosage: 5 MILLIGRAM, ONCE A DAY (5 MG, 1D  THE NEXT DAY)
     Route: 065
     Dates: start: 20210417
  6. WARFARIN [Interacting]
     Active Substance: WARFARIN
     Dosage: 10 MILLIGRAM, ONCE A DAY (10 MG, 1D)
     Route: 065
     Dates: start: 20210408
  7. VENLAFAXINE [Suspect]
     Active Substance: VENLAFAXINE HYDROCHLORIDE
     Indication: Product used for unknown indication
     Dosage: UNK
     Route: 065
     Dates: start: 2021
  8. PANTOPRAZOLE [Concomitant]
     Active Substance: PANTOPRAZOLE
     Indication: Product used for unknown indication
     Dosage: 40 MILLIGRAM, ONCE A DAY (40 MG, 1D)
     Route: 065
     Dates: start: 20210410
  9. PANTOPRAZOLE [Concomitant]
     Active Substance: PANTOPRAZOLE
     Dosage: 40 MILLIGRAM, ONCE A DAY (40 MG, 1D)
     Dates: start: 20210408

REACTIONS (7)
  - Suicide attempt [Recovered/Resolved]
  - Pulmonary embolism [Unknown]
  - Intentional overdose [Unknown]
  - Anxiety [Unknown]
  - Anorexia nervosa [Unknown]
  - Drug interaction [Unknown]
  - International normalised ratio increased [Unknown]
